FAERS Safety Report 18278480 (Version 2)
Quarter: 2020Q4

REPORT INFORMATION
  Report Type: Spontaneous
  Country: US (occurrence: US)
  Receive Date: 20200917
  Receipt Date: 20201128
  Transmission Date: 20210113
  Serious: No
  Sender: FDA-Public Use
  Company Number: US-BIOGEN-2020BI00924080

PATIENT
  Age: 58 Year
  Sex: Female

DRUGS (4)
  1. VUMERITY [Suspect]
     Active Substance: DIROXIMEL FUMARATE
     Dosage: MAINTENANCE DOSE
     Route: 065
  2. VUMERITY [Suspect]
     Active Substance: DIROXIMEL FUMARATE
     Indication: MULTIPLE SCLEROSIS
     Route: 048
     Dates: start: 20200830, end: 20200906
  3. VUMERITY [Suspect]
     Active Substance: DIROXIMEL FUMARATE
     Route: 065
     Dates: start: 20200911
  4. VUMERITY [Suspect]
     Active Substance: DIROXIMEL FUMARATE
     Route: 048
     Dates: start: 20200907

REACTIONS (2)
  - Dry mouth [Unknown]
  - Flushing [Recovered/Resolved]

NARRATIVE: CASE EVENT DATE: 20200830
